FAERS Safety Report 9448660 (Version 1)
Quarter: 2013Q3

REPORT INFORMATION
  Report Type: Spontaneous
  Country: DE (occurrence: DE)
  Receive Date: 20130808
  Receipt Date: 20130808
  Transmission Date: 20140515
  Serious: Yes (Disabling)
  Sender: FDA-Public Use
  Company Number: DE-009507513-1307DEU016315

PATIENT
  Sex: 0

DRUGS (2)
  1. CELESTAN [Suspect]
     Indication: PROPHYLAXIS
     Dosage: 4 MG, ONCE
     Route: 064
     Dates: start: 1987, end: 1987
  2. CELESTAN [Suspect]
     Indication: PREMATURE LABOUR

REACTIONS (2)
  - Adverse event [Unknown]
  - Foetal exposure during pregnancy [Unknown]
